FAERS Safety Report 6105866-5 (Version None)
Quarter: 2009Q1

REPORT INFORMATION
  Report Type: 
  Country: None (occurrence: None)
  Receive Date: 20090306
  Receipt Date: 20090302
  Transmission Date: 20090719
  Serious: Yes (Hospitalization)
  Sender: FDA-Public Use
  Company Number: US-EISAI MEDICAL RESEARCH-E2020-04206-SPO-US

PATIENT
  Sex: Female
  Weight: 72.7 kg

DRUGS (6)
  1. ARICEPT [Suspect]
     Indication: DEMENTIA
     Route: 048
     Dates: end: 20090123
  2. ARICEPT [Suspect]
     Route: 048
     Dates: start: 20090101, end: 20090101
  3. NAMENDA [Concomitant]
  4. LEXAPRO [Concomitant]
  5. K [Concomitant]
  6. LASIX [Concomitant]

REACTIONS (7)
  - CHEST DISCOMFORT [None]
  - CONFUSIONAL STATE [None]
  - GASTRIC ULCER [None]
  - MUSCULOSKELETAL DISCOMFORT [None]
  - OESOPHAGEAL ULCER [None]
  - PANCREATITIS [None]
  - PNEUMONIA ASPIRATION [None]
